FAERS Safety Report 6926502-1 (Version None)
Quarter: 2010Q3

REPORT INFORMATION
  Report Type: 
  Country: None (occurrence: None)
  Receive Date: 20100816
  Receipt Date: 20100518
  Transmission Date: 20110219
  Serious: No
  Sender: FDA-Public Use
  Company Number: US-ABBOTT-10P-163-0643557-00

PATIENT
  Sex: Female
  Weight: 74.456 kg

DRUGS (7)
  1. SIMCOR [Suspect]
     Indication: HIGH DENSITY LIPOPROTEIN DECREASED
     Dosage: 500/20 MG
     Route: 048
     Dates: start: 20100509
  2. SIMCOR [Suspect]
     Indication: LOW DENSITY LIPOPROTEIN INCREASED
  3. SIMCOR [Suspect]
     Indication: HYPERLIPIDAEMIA
  4. IBUPROFEN [Concomitant]
     Indication: PRODUCT USED FOR UNKNOWN INDICATION
  5. ADVAIR DISKUS 100/50 [Concomitant]
     Indication: PRODUCT USED FOR UNKNOWN INDICATION
  6. LOPID [Concomitant]
     Indication: PRODUCT USED FOR UNKNOWN INDICATION
  7. SUDAFED 12 HOUR [Concomitant]
     Indication: PRODUCT USED FOR UNKNOWN INDICATION

REACTIONS (2)
  - FLUSHING [None]
  - TERMINAL INSOMNIA [None]
